FAERS Safety Report 4427089-8 (Version None)
Quarter: 2004Q3

REPORT INFORMATION
  Report Type: 
  Country: None (occurrence: None)
  Receive Date: 20040726
  Receipt Date: 20040330
  Transmission Date: 20050211
  Serious: No
  Sender: FDA-Public Use
  Company Number: USA031151935

PATIENT
  Age: 76 Year
  Sex: Female
  Weight: 61 kg

DRUGS (1)
  1. FORTEO [Suspect]
     Indication: OSTEOPOROSIS
     Dosage: 20 UG DAY
     Dates: start: 20031027, end: 20040316

REACTIONS (5)
  - AMNESIA [None]
  - CONDITION AGGRAVATED [None]
  - PAIN [None]
  - RASH [None]
  - VASCULAR RUPTURE [None]
